FAERS Safety Report 6723453-2 (Version None)
Quarter: 2010Q2

REPORT INFORMATION
  Report Type: 
  Country: None (occurrence: None)
  Receive Date: 20100513
  Receipt Date: 20100511
  Transmission Date: 20101027
  Serious: Yes (Life-Threatening, Hospitalization)
  Sender: FDA-Public Use
  Company Number: PHHY2009AU57149

PATIENT
  Sex: Female

DRUGS (6)
  1. CLOZARIL [Suspect]
     Indication: SCHIZOPHRENIA
     Dosage: 12.5 UNK, UNK
     Route: 048
     Dates: start: 20091203
  2. CLOZARIL [Suspect]
     Dosage: 100 UNK, UNK
     Route: 048
     Dates: start: 20091208
  3. CLOZARIL [Suspect]
     Dosage: 225 MG, UNK
     Route: 048
     Dates: start: 20091217, end: 20091219
  4. VALPROATE SODIUM [Concomitant]
     Indication: MOOD ALTERED
     Route: 048
  5. FLUPENTIXOL DECANOATE [Concomitant]
     Route: 030
  6. MIRTAZAPINE [Concomitant]
     Indication: DEPRESSION
     Route: 048

REACTIONS (12)
  - GENERAL PHYSICAL HEALTH DETERIORATION [None]
  - ISCHAEMIC HEPATITIS [None]
  - LOSS OF CONSCIOUSNESS [None]
  - MALAISE [None]
  - MYOCARDITIS [None]
  - PULMONARY OEDEMA [None]
  - PYREXIA [None]
  - SEPSIS [None]
  - SEROTONIN SYNDROME [None]
  - SYNCOPE [None]
  - TROPONIN INCREASED [None]
  - VENTRICULAR DYSFUNCTION [None]
